FAERS Safety Report 5986971-0 (Version None)
Quarter: 2008Q4

REPORT INFORMATION
  Report Type: 
  Country: None (occurrence: None)
  Receive Date: 20081209
  Receipt Date: 20080904
  Transmission Date: 20090506
  Serious: No
  Sender: FDA-Public Use
  Company Number: US-AMGEN-KDL305350

PATIENT
  Sex: Female
  Weight: 104.4 kg

DRUGS (6)
  1. ENBREL [Suspect]
     Indication: RHEUMATOID ARTHRITIS
     Route: 058
  2. METHOTREXATE [Concomitant]
  3. MOBIC [Concomitant]
  4. PREDNISONE TAB [Concomitant]
  5. UNKNOWN [Concomitant]
  6. FOLIC ACID [Concomitant]

REACTIONS (3)
  - BRONCHITIS [None]
  - RHEUMATOID ARTHRITIS [None]
  - RHEUMATOID NODULE [None]
